FAERS Safety Report 7629774-3 (Version None)
Quarter: 2011Q3

REPORT INFORMATION
  Report Type: 
  Country: None (occurrence: None)
  Receive Date: 20110722
  Receipt Date: 20110719
  Transmission Date: 20111222
  Serious: Yes (Life-Threatening, Other)
  Sender: FDA-Public Use
  Company Number: DE-B.I. PHARMACEUTICALS,INC./RIDGEFIELD-2011-DE-03906DE

PATIENT
  Sex: Male
  Weight: 80 kg

DRUGS (16)
  1. PANTOPRAZOLE [Concomitant]
     Indication: CORONARY ARTERY DISEASE
  2. ETOMIDATE [Concomitant]
     Indication: ANAESTHESIA
     Dosage: 20 MG
     Route: 042
  3. FENTANYL [Concomitant]
     Indication: ANAESTHESIA
     Dosage: 0.35 MG
     Route: 042
  4. CLONIDINE [Suspect]
     Indication: ANALGESIC THERAPY
     Dosage: 75 MCG
     Route: 042
  5. ATRACURIUM [Concomitant]
     Indication: ANAESTHESIA
     Dosage: 40 MG
     Route: 042
  6. PROPOFOL [Concomitant]
     Indication: ANAESTHESIA
     Dosage: 80 MG
  7. SIMVASTATIN [Concomitant]
     Indication: HYPERTENSION
     Dosage: 20 MG
     Route: 048
  8. PANTOPRAZOLE [Concomitant]
     Indication: HYPERTENSION
     Dosage: 20 MG
     Route: 048
  9. AMLODIPINE [Concomitant]
     Indication: HYPERTENSION
     Dosage: 5 MG
     Route: 048
  10. METOPROLOL TARTRATE [Concomitant]
     Indication: CORONARY ARTERY DISEASE
  11. METOPROLOL TARTRATE [Concomitant]
     Indication: HYPERTENSION
     Dosage: 95 MG
     Route: 048
  12. RAMIPRIL [Concomitant]
     Indication: HYPERTENSION
     Dosage: 5 MG
     Route: 048
  13. SEVOFLURANE [Concomitant]
     Indication: ANAESTHESIA
     Dosage: 1-2%
     Route: 055
  14. RAMIPRIL [Concomitant]
     Indication: CORONARY ARTERY DISEASE
  15. SIMVASTATIN [Concomitant]
     Indication: CORONARY ARTERY DISEASE
  16. AMLODIPINE [Concomitant]
     Indication: CORONARY ARTERY DISEASE

REACTIONS (3)
  - PULMONARY OEDEMA [None]
  - HYPOXIA [None]
  - CARDIAC FAILURE [None]
